FAERS Safety Report 7965752-2 (Version None)
Quarter: 2011Q4

REPORT INFORMATION
  Report Type: 
  Country: None (occurrence: None)
  Receive Date: 20111208
  Receipt Date: 20111206
  Transmission Date: 20120403
  Serious: Yes (Other)
  Sender: FDA-Public Use
  Company Number: ZA-PFIZER INC-2011299659

PATIENT
  Age: 58 Year
  Sex: Female
  Weight: 82 kg

DRUGS (2)
  1. AMLOC [Concomitant]
     Indication: HYPERTENSION
  2. VARENICLINE TARTRATE [Suspect]
     Route: 048

REACTIONS (3)
  - GENERALISED OEDEMA [None]
  - OEDEMA [None]
  - RESPIRATORY DEPRESSION [None]
